FAERS Safety Report 13300938 (Version 1)
Quarter: 2017Q1

REPORT INFORMATION
  Report Type: Spontaneous
  Country: US (occurrence: US)
  Receive Date: 20170307
  Receipt Date: 20170307
  Transmission Date: 20170428
  Serious: Yes (Other)
  Sender: FDA-Public Use
  Company Number: US-OREXIGEN THERAPEUTICS, INC.-1063899

PATIENT
  Age: 52 Year
  Sex: Female
  Weight: 113 kg

DRUGS (3)
  1. ASCORBIC ACID. [Concomitant]
     Active Substance: ASCORBIC ACID
     Route: 048
  2. PYRIDOXINE HYDROCHLORIDE. [Concomitant]
     Active Substance: PYRIDOXINE HYDROCHLORIDE
     Route: 048
  3. CONTRAVE [Suspect]
     Active Substance: BUPROPION HYDROCHLORIDE\NALTREXONE HYDROCHLORIDE
     Indication: OBESITY
     Route: 065
     Dates: start: 20170224, end: 20170224

REACTIONS (4)
  - Face oedema [Unknown]
  - Paraesthesia [Unknown]
  - Somnolence [Unknown]
  - Visual impairment [Unknown]

NARRATIVE: CASE EVENT DATE: 20170224
